FAERS Safety Report 23230267 (Version 1)
Quarter: 2023Q4

REPORT INFORMATION
  Report Type: Spontaneous
  Country: US (occurrence: US)
  Receive Date: 20231127
  Receipt Date: 20231127
  Transmission Date: 20240110
  Serious: No
  Sender: FDA-Public Use
  Company Number: US-GE HEALTHCARE-2023CSU008007

PATIENT
  Age: 67 Year
  Sex: Male

DRUGS (5)
  1. OMNIPAQUE [Suspect]
     Active Substance: IOHEXOL
     Indication: Computerised tomogram thorax
     Dosage: 100 ML, SINGLE
     Route: 042
     Dates: start: 20230911, end: 20230911
  2. OMNIPAQUE [Suspect]
     Active Substance: IOHEXOL
     Indication: Computerised tomogram abdomen
  3. OMNIPAQUE [Suspect]
     Active Substance: IOHEXOL
     Indication: Pancreatic carcinoma
  4. VIAGRA [Concomitant]
     Active Substance: SILDENAFIL CITRATE
     Dosage: UNK
  5. ZINC SULFATE [Concomitant]
     Active Substance: ZINC SULFATE
     Dosage: UNK

REACTIONS (1)
  - Contrast media reaction [Recovered/Resolved]

NARRATIVE: CASE EVENT DATE: 20230911
